FAERS Safety Report 4973314-4 (Version None)
Quarter: 2006Q2

REPORT INFORMATION
  Report Type: 
  Country: None (occurrence: None)
  Receive Date: 20060414
  Receipt Date: 20060403
  Transmission Date: 20061013
  Serious: Yes (Hospitalization, Disabling)
  Sender: FDA-Public Use
  Company Number: US-MERCK-0604USA00685

PATIENT
  Age: 56 Year
  Sex: Male
  Weight: 68 kg

DRUGS (10)
  1. VIOXX [Suspect]
     Indication: ARTHRITIS
     Route: 065
     Dates: start: 20000602, end: 20030325
  2. VIOXX [Suspect]
     Route: 065
     Dates: start: 20031201
  3. VIOXX [Suspect]
     Indication: BACK PAIN
     Route: 065
     Dates: start: 20000602, end: 20030325
  4. VIOXX [Suspect]
     Route: 065
     Dates: start: 20031201
  5. WELLBUTRIN [Concomitant]
     Indication: DEPRESSION
     Route: 065
  6. WELLBUTRIN [Concomitant]
     Indication: EX-SMOKER
     Route: 065
  7. NEURONTIN [Concomitant]
     Route: 065
  8. IMITREX [Concomitant]
     Route: 065
  9. CLONAZEPAM [Concomitant]
     Route: 065
  10. VIAGRA [Concomitant]
     Route: 065

REACTIONS (23)
  - ACUTE MYOCARDIAL INFARCTION [None]
  - ANAEMIA [None]
  - ARTERIOSCLEROSIS CORONARY ARTERY [None]
  - BACK PAIN [None]
  - CALCULUS URETERIC [None]
  - CARDIAC DISORDER [None]
  - CHRONIC OBSTRUCTIVE PULMONARY DISEASE [None]
  - COLONIC POLYP [None]
  - CORONARY ARTERY OCCLUSION [None]
  - DYSPEPSIA [None]
  - GASTRITIS [None]
  - HAEMATURIA [None]
  - HIATUS HERNIA [None]
  - HYPOAESTHESIA [None]
  - INSOMNIA [None]
  - INTERVERTEBRAL DISC PROTRUSION [None]
  - IRON DEFICIENCY ANAEMIA [None]
  - OESOPHAGITIS [None]
  - PAIN IN EXTREMITY [None]
  - PROSTATE EXAMINATION ABNORMAL [None]
  - RESPIRATORY DISORDER [None]
  - SUICIDE ATTEMPT [None]
  - THERAPEUTIC RESPONSE DECREASED [None]
